FAERS Safety Report 9136565 (Version 1)
Quarter: 2013Q1

REPORT INFORMATION
  Report Type: Spontaneous
  Country: US (occurrence: US)
  Receive Date: 20130304
  Receipt Date: 20130304
  Transmission Date: 20140127
  Serious: No
  Sender: FDA-Public Use
  Company Number: US-ABBOTT-12P-163-0928074-00

PATIENT
  Age: 60 Year
  Sex: Male

DRUGS (6)
  1. ANDROGEL 1% [Suspect]
     Indication: BLOOD TESTOSTERONE DECREASED
     Dosage: 1 PACKET PER DAY
     Dates: start: 201111, end: 201202
  2. ANDROGEL 1% [Suspect]
     Dosage: 1 PACKET PER DAY
     Route: 061
     Dates: start: 20120419
  3. METFORMIN [Concomitant]
     Indication: DIABETES MELLITUS
  4. PAXIL [Concomitant]
     Indication: STRESS
  5. ASPIRIN [Concomitant]
     Indication: PRODUCT USED FOR UNKNOWN INDICATION
  6. MULTIVITAMIN [Concomitant]
     Indication: VITAMIN SUPPLEMENTATION

REACTIONS (5)
  - Drug ineffective [Not Recovered/Not Resolved]
  - Drug ineffective [Not Recovered/Not Resolved]
  - Drug ineffective [Not Recovered/Not Resolved]
  - Blood testosterone decreased [Unknown]
  - Drug dose omission [Unknown]
